FAERS Safety Report 8325406-X (Version None)
Quarter: 2012Q2

REPORT INFORMATION
  Report Type: 
  Country: None (occurrence: None)
  Receive Date: 20120501
  Receipt Date: 20100421
  Transmission Date: 20120825
  Serious: No
  Sender: FDA-Public Use
  Company Number: US-TEVA-2010002343

PATIENT
  Sex: Female
  Weight: 99.88 kg

DRUGS (1)
  1. NUVIGIL [Suspect]
     Indication: SOMNOLENCE
     Route: 048
     Dates: start: 20100105, end: 20100410

REACTIONS (2)
  - MUSCLE SPASMS [None]
  - PERIPHERAL COLDNESS [None]
